FAERS Safety Report 16909224 (Version 1)
Quarter: 2019Q4

REPORT INFORMATION
  Report Type: Spontaneous
  Country: US (occurrence: US)
  Receive Date: 20191011
  Receipt Date: 20191011
  Transmission Date: 20200122
  Serious: No
  Sender: FDA-Public Use
  Company Number: None

PATIENT
  Age: 81 Year
  Sex: Female
  Weight: 60.3 kg

DRUGS (18)
  1. DOCUSATE SODIUM. [Concomitant]
     Active Substance: DOCUSATE SODIUM
  2. IBRANCE [Suspect]
     Active Substance: PALBOCICLIB
     Indication: BREAST CANCER FEMALE
     Route: 048
  3. MELOXICAM. [Concomitant]
     Active Substance: MELOXICAM
  4. SENNA LAXATIVE [Concomitant]
     Active Substance: SENNOSIDES
  5. PROPRANOLOL HCL [Concomitant]
     Active Substance: PROPRANOLOL HYDROCHLORIDE
  6. VENLAFAXINE HCL [Concomitant]
     Active Substance: VENLAFAXINE HYDROCHLORIDE
  7. FENTANYL. [Concomitant]
     Active Substance: FENTANYL
  8. PANTOPRAZOLE SODIUUM [Concomitant]
  9. LISINOPRIL. [Concomitant]
     Active Substance: LISINOPRIL
  10. HERCEPTIN [Concomitant]
     Active Substance: TRASTUZUMAB
  11. FASLODEX [Concomitant]
     Active Substance: FULVESTRANT
  12. OXYCONTIN [Concomitant]
     Active Substance: OXYCODONE HYDROCHLORIDE
  13. ONDANSETRON HCL [Concomitant]
     Active Substance: ONDANSETRON HYDROCHLORIDE
  14. FULVESTRANT. [Concomitant]
     Active Substance: FULVESTRANT
  15. MIRALAX [Concomitant]
     Active Substance: POLYETHYLENE GLYCOL 3350
  16. SODIUM CHLORIDE. [Concomitant]
     Active Substance: SODIUM CHLORIDE
  17. AMLODIPINE [Concomitant]
     Active Substance: AMLODIPINE BESYLATE
  18. OXYCODONE-ACETAMINOPHEN [Concomitant]
     Active Substance: ACETAMINOPHEN\OXYCODONE HYDROCHLORIDE

REACTIONS (4)
  - Vomiting [None]
  - Abdominal discomfort [None]
  - Blood count abnormal [None]
  - Nausea [None]
